FAERS Safety Report 19200942 (Version 2)
Quarter: 2021Q2

REPORT INFORMATION
  Report Type: Spontaneous
  Country: ZA (occurrence: ZA)
  Receive Date: 20210430
  Receipt Date: 20210511
  Transmission Date: 20210717
  Serious: Yes (Other)
  Sender: FDA-Public Use
  Company Number: ZA-GILEAD-2021-0527151

PATIENT
  Age: 48 Year
  Sex: Male

DRUGS (2)
  1. FRESUBIN [Concomitant]
     Active Substance: AMINO ACIDS\DEXTROSE\ELECTROLYTES NOS\SOYBEAN OIL\VITAMINS
  2. TRUVADA [Suspect]
     Active Substance: EMTRICITABINE\TENOFOVIR DISOPROXIL FUMARATE
     Indication: PROPHYLAXIS AGAINST HIV INFECTION
     Dosage: 1 DOSAGE FORM, QD
     Route: 048
     Dates: start: 20210116, end: 20210426

REACTIONS (17)
  - Immunodeficiency [Not Recovered/Not Resolved]
  - Pollakiuria [Unknown]
  - Nausea [Recovering/Resolving]
  - Oedema [Recovering/Resolving]
  - Suicidal ideation [Unknown]
  - Feeding disorder [Not Recovered/Not Resolved]
  - Wheezing [Not Recovered/Not Resolved]
  - Vomiting [Unknown]
  - Hypersensitivity [Recovering/Resolving]
  - Dizziness [Not Recovered/Not Resolved]
  - Depression [Recovering/Resolving]
  - Eye disorder [Recovering/Resolving]
  - Feeling abnormal [Unknown]
  - Emotional distress [Recovering/Resolving]
  - Influenza [Unknown]
  - Gait inability [Not Recovered/Not Resolved]
  - Malaise [Unknown]

NARRATIVE: CASE EVENT DATE: 202104
